FAERS Safety Report 10545415 (Version 2)
Quarter: 2014Q4

REPORT INFORMATION
  Report Type: Spontaneous
  Country: US (occurrence: US)
  Receive Date: 20141027
  Receipt Date: 20141215
  Transmission Date: 20150529
  Serious: No
  Sender: FDA-Public Use
  Company Number: US-PFIZER INC-2014293332

PATIENT
  Age: 61 Year
  Sex: Female
  Weight: 70 kg

DRUGS (4)
  1. CELEBREX [Suspect]
     Active Substance: CELECOXIB
     Indication: ARTHRALGIA
  2. VITAMINS [Concomitant]
     Active Substance: VITAMINS
  3. CELEBREX [Suspect]
     Active Substance: CELECOXIB
     Indication: SCIATIC NERVE NEUROPATHY
  4. CELEBREX [Suspect]
     Active Substance: CELECOXIB
     Indication: INTERVERTEBRAL DISC PROTRUSION
     Dosage: 200 MG, DAILY (ONCE A DAY)
     Dates: start: 2007

REACTIONS (1)
  - Arthropathy [Unknown]
